FAERS Safety Report 18296939 (Version 1)
Quarter: 2020Q3

REPORT INFORMATION
  Report Type: Spontaneous
  Country: JP (occurrence: JP)
  Receive Date: 20200922
  Receipt Date: 20200922
  Transmission Date: 20201103
  Serious: Yes (Hospitalization)
  Sender: FDA-Public Use
  Company Number: JP-ALLERGAN-2035638US

PATIENT
  Sex: Male

DRUGS (1)
  1. ESCITALOPRAM OXALATE ? BP [Suspect]
     Active Substance: ESCITALOPRAM OXALATE
     Indication: PRODUCT USED FOR UNKNOWN INDICATION
     Dosage: 5 MG, QD
     Route: 048
     Dates: start: 20200905

REACTIONS (6)
  - Quadriplegia [Unknown]
  - Yawning [Unknown]
  - Dizziness [Unknown]
  - Mental impairment [Unknown]
  - Hypoaesthesia [Unknown]
  - Memory impairment [Unknown]

NARRATIVE: CASE EVENT DATE: 202009
